FAERS Safety Report 7954228-4 (Version None)
Quarter: 2011Q4

REPORT INFORMATION
  Report Type: 
  Country: None (occurrence: None)
  Receive Date: 20111202
  Receipt Date: 20111129
  Transmission Date: 20120403
  Serious: Yes (Other)
  Sender: FDA-Public Use
  Company Number: US-ROCHE-1017337

PATIENT
  Sex: Female

DRUGS (2)
  1. FOSAMAX [Suspect]
     Indication: OSTEOPOROSIS
     Dates: start: 20010901, end: 20090101
  2. BONIVA [Suspect]
     Indication: OSTEOPOROSIS
     Dates: start: 20090101, end: 20100201

REACTIONS (4)
  - ANXIETY [None]
  - FEMUR FRACTURE [None]
  - BONE DISORDER [None]
  - STRESS FRACTURE [None]
